FAERS Safety Report 26155652 (Version 1)
Quarter: 2025Q4

REPORT INFORMATION
  Report Type: Spontaneous
  Country: JP (occurrence: JP)
  Receive Date: 20251215
  Receipt Date: 20251215
  Transmission Date: 20260117
  Serious: Yes (Other)
  Sender: ALKEM
  Company Number: None

PATIENT
  Age: 81 Year
  Sex: Female
  Weight: 42 kg

DRUGS (22)
  1. TACROLIMUS [Interacting]
     Active Substance: TACROLIMUS
     Indication: Connective tissue disease-associated interstitial lung disease
     Dosage: 2 MILLIGRAM, QD
     Route: 048
  2. TACROLIMUS [Interacting]
     Active Substance: TACROLIMUS
     Dosage: 1.5 MILLIGRAM, QD
     Route: 048
  3. TACROLIMUS [Interacting]
     Active Substance: TACROLIMUS
     Dosage: 1.5 MILLIGRAM, QD (PO DAILY AFTER DINNER)
     Route: 065
  4. TACROLIMUS [Interacting]
     Active Substance: TACROLIMUS
     Dosage: 0.2 MILLIGRAM, QD (AFTER DINNER (19:00) ON DAY 5)
     Route: 048
  5. TACROLIMUS [Interacting]
     Active Substance: TACROLIMUS
     Dosage: 1 MILLIGRAM,QD (AT 19:00 ON DAY 7)
     Route: 048
  6. TACROLIMUS [Interacting]
     Active Substance: TACROLIMUS
     Dosage: 1.5 MILLIGRAM, QD
     Route: 065
  7. METHYLPREDNISOLONE [Suspect]
     Active Substance: METHYLPREDNISOLONE
     Indication: Immunosuppressant drug therapy
     Dosage: 1000 MILLIGRAM, QD
     Route: 042
  8. METHYLPREDNISOLONE [Suspect]
     Active Substance: METHYLPREDNISOLONE
     Indication: COVID-19 pneumonia
     Dosage: UNK
     Route: 042
  9. DEXAMETHASONE [Suspect]
     Active Substance: DEXAMETHASONE
     Indication: Immunosuppressant drug therapy
     Dosage: 6 MILLIGRAM, QD (PO AFTER BREAKFAST)
     Route: 065
  10. DEXAMETHASONE [Suspect]
     Active Substance: DEXAMETHASONE
     Dosage: 6 MILLIGRAM, QD (AFTER BREAKFAST)
     Route: 042
  11. ENSITRELVIR [Interacting]
     Active Substance: ENSITRELVIR
     Indication: COVID-19
     Dosage: 375 MILLIGRAM, QD (PO) (1 TOTAL)
     Route: 048
  12. ENSITRELVIR [Interacting]
     Active Substance: ENSITRELVIR
     Indication: COVID-19 pneumonia
     Dosage: 125 MILLIGRAM, QD (125 MILLIGRAM, (PO)
     Route: 065
  13. PREDNISOLONE [Suspect]
     Active Substance: PREDNISOLONE
     Indication: Connective tissue disease-associated interstitial lung disease
     Dosage: 3 MILLIGRAM, QD (PER OS AFTER BREAKFAST)
     Route: 048
  14. PREDNISOLONE [Suspect]
     Active Substance: PREDNISOLONE
     Indication: Immunosuppressant drug therapy
     Dosage: 30 MILLIGRAM, QD (PO AFTER BREAKFAST)
     Route: 065
  15. PREDNISOLONE [Suspect]
     Active Substance: PREDNISOLONE
     Dosage: UNK
     Route: 048
  16. ABATACEPT [Concomitant]
     Active Substance: ABATACEPT
     Indication: Connective tissue disease-associated interstitial lung disease
     Dosage: 500 MILLIGRAM (ONCE MONTHLY)
     Route: 042
  17. ASPIRIN [Concomitant]
     Active Substance: ASPIRIN
     Indication: Product used for unknown indication
     Dosage: 100 MILLIGRAM, QD (PO AFTER BREAKFAST)
     Route: 048
  18. BARICITINIB [Concomitant]
     Active Substance: BARICITINIB
     Indication: Connective tissue disease-associated interstitial lung disease
     Dosage: 2 MILLIGRAM, QD (PO AFTER BREAKFAST)
     Route: 065
  19. DENOSUMAB [Concomitant]
     Active Substance: DENOSUMAB
     Indication: Product used for unknown indication
     Dosage: 60 MILLIGRAM (EVERY SIX MONTHS)
     Route: 058
  20. ESOMEPRAZOLE [Concomitant]
     Active Substance: ESOMEPRAZOLE
     Indication: Product used for unknown indication
     Dosage: 20 MILLIGRAM, QD (PO AFTER BREAKFAST)
     Route: 048
  21. NICORANDIL [Concomitant]
     Active Substance: NICORANDIL
     Indication: Product used for unknown indication
     Dosage: 5 MILLIGRAM, TID (PO AFTER MEALS)
     Route: 048
  22. RIVASTIGMINE [Concomitant]
     Active Substance: RIVASTIGMINE
     Indication: Product used for unknown indication
     Dosage: 18 MILLIGRAM, QD (PATCH)
     Route: 065

REACTIONS (8)
  - Pneumonia [Recovering/Resolving]
  - Pneumonia [Recovering/Resolving]
  - COVID-19 [Recovering/Resolving]
  - Blood creatinine increased [Recovered/Resolved]
  - Immunosuppressant drug level decreased [Recovered/Resolved]
  - Drug interaction [Recovered/Resolved]
  - Drug clearance decreased [Recovered/Resolved]
  - Drug half-life increased [Recovered/Resolved]
